FAERS Safety Report 5373870-0 (Version None)
Quarter: 2007Q2

REPORT INFORMATION
  Report Type: 
  Country: None (occurrence: None)
  Receive Date: 20070628
  Receipt Date: 20070618
  Transmission Date: 20071010
  Serious: Yes (Hospitalization, Other)
  Sender: FDA-Public Use
  Company Number: US-PFIZER INC-2007046118

PATIENT
  Sex: Female
  Weight: 59.5 kg

DRUGS (14)
  1. CHANTIX [Suspect]
     Indication: EX-SMOKER
     Dates: start: 20070513, end: 20070527
  2. METOPROLOL SUCCINATE [Concomitant]
  3. ATENOLOL [Concomitant]
  4. PREMARIN [Concomitant]
  5. ACIPHEX [Concomitant]
  6. ECOTRIN [Concomitant]
  7. LISINOPRIL [Concomitant]
  8. ALL OTHER THERAPEUTIC PRODUCTS [Concomitant]
  9. AVANDIA [Concomitant]
  10. ADVAIR DISKUS 100/50 [Concomitant]
  11. PROMETHAZINE [Concomitant]
  12. VYTORIN [Concomitant]
  13. TOPROL-XL [Concomitant]
  14. LEVOTHYROXINE SODIUM [Concomitant]

REACTIONS (5)
  - ACTIVITIES OF DAILY LIVING IMPAIRED [None]
  - CONFUSIONAL STATE [None]
  - FALL [None]
  - HALLUCINATION [None]
  - HEAD INJURY [None]
